FAERS Safety Report 16567783 (Version 1)
Quarter: 2019Q3

REPORT INFORMATION
  Report Type: Report from Study
  Country: US (occurrence: US)
  Receive Date: 20190712
  Receipt Date: 20190712
  Transmission Date: 20191004
  Serious: Yes (Hospitalization, Other)
  Sender: FDA-Public Use
  Company Number: US-GILEAD-2019-0418086

PATIENT
  Age: 14 Year
  Sex: Male

DRUGS (12)
  1. MINOCYCLINE [Concomitant]
     Active Substance: MINOCYCLINE HYDROCHLORIDE
  2. PULMOZYME [Concomitant]
     Active Substance: DORNASE ALFA
  3. CLINDAMYCIN. [Concomitant]
     Active Substance: CLINDAMYCIN
  4. ALBUTEROL [SALBUTAMOL] [Concomitant]
     Active Substance: ALBUTEROL
  5. FLUCONAZOLE. [Concomitant]
     Active Substance: FLUCONAZOLE
  6. IPRATROPIUM [Concomitant]
     Active Substance: IPRATROPIUM
  7. MONTELUKAST [Concomitant]
     Active Substance: MONTELUKAST SODIUM
  8. AZTREONAM LYSINE [Suspect]
     Active Substance: AZTREONAM LYSINE
     Indication: CYSTIC FIBROSIS
     Dosage: 75 MG, TID
     Dates: start: 20130710
  9. CETIRIZINE [Concomitant]
     Active Substance: CETIRIZINE HYDROCHLORIDE
  10. HYDROCORT [HYDROCORTISONE ACETATE] [Concomitant]
  11. SYMBICORT [Concomitant]
     Active Substance: BUDESONIDE\FORMOTEROL FUMARATE DIHYDRATE
  12. URSODIOL. [Concomitant]
     Active Substance: URSODIOL

REACTIONS (1)
  - Cystic fibrosis [Unknown]
